FAERS Safety Report 16969203 (Version 2)
Quarter: 2019Q4

REPORT INFORMATION
  Report Type: Spontaneous
  Country: US (occurrence: US)
  Receive Date: 20191029
  Receipt Date: 20191102
  Transmission Date: 20200122
  Serious: Yes (Other)
  Sender: FDA-Public Use
  Company Number: US-HETERO-HET2019US01488

PATIENT
  Age: 45 Year
  Sex: Male
  Weight: 100 kg

DRUGS (3)
  1. ACITRETIN. [Suspect]
     Active Substance: ACITRETIN
     Indication: SEBACEOUS ADENITIS
     Dosage: UNK
     Route: 065
  2. BACTRIM [Suspect]
     Active Substance: SULFAMETHOXAZOLE\TRIMETHOPRIM
     Indication: PROSTATITIS
     Dosage: UNK
     Route: 065
  3. LEVOFLOXACIN. [Suspect]
     Active Substance: LEVOFLOXACIN
     Indication: PROSTATITIS
     Dosage: UNK
     Route: 065

REACTIONS (2)
  - Sebaceous adenitis [Recovered/Resolved]
  - Pancreatitis acute [Recovered/Resolved]
